FAERS Safety Report 7246403-1 (Version None)
Quarter: 2011Q1

REPORT INFORMATION
  Report Type: 
  Country: None (occurrence: None)
  Receive Date: 20110126
  Receipt Date: 20100413
  Transmission Date: 20110831
  Serious: No
  Sender: FDA-Public Use
  Company Number: US-BAUSCH-2010BL001976

PATIENT
  Age: 89 Year
  Sex: Female
  Weight: 65 kg

DRUGS (2)
  1. ZYLET [Suspect]
     Indication: EYE INFLAMMATION
     Route: 047
     Dates: start: 20100408, end: 20100411
  2. COSOPT [Concomitant]
     Indication: GLAUCOMA
     Route: 047

REACTIONS (1)
  - EYE IRRITATION [None]
